FAERS Safety Report 8203942-4 (Version None)
Quarter: 2012Q1

REPORT INFORMATION
  Report Type: 
  Country: None (occurrence: None)
  Receive Date: 20120313
  Receipt Date: 20120305
  Transmission Date: 20120608
  Serious: Yes (Hospitalization)
  Sender: FDA-Public Use
  Company Number: US-US-EMD SERONO, INC.-7022819

PATIENT
  Sex: Male
  Weight: 89 kg

DRUGS (5)
  1. BACLOFEN [Concomitant]
  2. PROVIGIL [Concomitant]
  3. REBIF [Suspect]
     Indication: MULTIPLE SCLEROSIS
     Route: 058
     Dates: start: 20070101
  4. METOPROLOL SUCCINATE [Concomitant]
  5. VENLAFAXINE [Concomitant]

REACTIONS (5)
  - AORTIC ANEURYSM RUPTURE [None]
  - MOVEMENT DISORDER [None]
  - FATIGUE [None]
  - MULTIPLE SCLEROSIS [None]
  - GAIT DISTURBANCE [None]
